FAERS Safety Report 4498961-8 (Version None)
Quarter: 2004Q4

REPORT INFORMATION
  Report Type: 
  Country: None (occurrence: None)
  Receive Date: 20041108
  Receipt Date: 20041101
  Transmission Date: 20050328
  Serious: Yes (Life-Threatening)
  Sender: FDA-Public Use
  Company Number: 2004AC00701

PATIENT
  Age: 83 Year
  Sex: Male

DRUGS (3)
  1. PROPOFOL [Suspect]
     Indication: GENERAL ANAESTHESIA
  2. REMIFENTANIL [Suspect]
     Indication: GENERAL ANAESTHESIA
  3. ATRACURIUM [Suspect]
     Indication: GENERAL ANAESTHESIA
     Dosage: BOLUS + CONTINUOUSLY

REACTIONS (8)
  - AIR EMBOLISM [None]
  - CEREBRAL ARTERY EMBOLISM [None]
  - CEREBRAL PERFUSION PRESSURE DECREASED [None]
  - DRUG LEVEL INCREASED [None]
  - HYPOTENSION [None]
  - PCO2 DECREASED [None]
  - PNEUMOPERITONEUM [None]
  - PROCEDURAL COMPLICATION [None]
